FAERS Safety Report 17394956 (Version 1)
Quarter: 2020Q1

REPORT INFORMATION
  Report Type: Spontaneous
  Country: US (occurrence: US)
  Receive Date: 20200124
  Receipt Date: 20200124
  Transmission Date: 20200409
  Serious: No
  Sender: FDA-Public Use
  Company Number: None

PATIENT
  Age: 77 Year
  Sex: Male

DRUGS (1)
  1. COPAXONE [Suspect]
     Active Substance: GLATIRAMER ACETATE
     Indication: MULTIPLE SCLEROSIS
     Route: 058

REACTIONS (7)
  - Palpitations [None]
  - Incoherent [None]
  - Seizure [None]
  - Blood pressure increased [None]
  - Exophthalmos [None]
  - Tremor [None]
  - Loss of consciousness [None]

NARRATIVE: CASE EVENT DATE: 20200124
